FAERS Safety Report 6016242-8 (Version None)
Quarter: 2008Q4

REPORT INFORMATION
  Report Type: 
  Country: None (occurrence: None)
  Receive Date: 20081218
  Receipt Date: 20081205
  Transmission Date: 20090506
  Serious: Yes (Death, Hospitalization, Other)
  Sender: FDA-Public Use
  Company Number: MSTR-NO-0805S-0022

PATIENT
  Age: 70 Year
  Weight: 53.6 kg

DRUGS (1)
  1. METASTRON [Suspect]
     Indication: METASTATIC PAIN
     Dosage: 107.2 MGQ, SINGLE DOSE, I.V.
     Route: 042
     Dates: start: 20080509, end: 20080509

REACTIONS (7)
  - BACILLUS INFECTION [None]
  - BLOOD CULTURE POSITIVE [None]
  - BONE MARROW FAILURE [None]
  - DEPRESSED LEVEL OF CONSCIOUSNESS [None]
  - DISSEMINATED INTRAVASCULAR COAGULATION [None]
  - INFLAMMATION [None]
  - PNEUMONIA [None]
